FAERS Safety Report 13654634 (Version 1)
Quarter: 2017Q2

REPORT INFORMATION
  Report Type: Spontaneous
  Country: US (occurrence: US)
  Receive Date: 20170614
  Receipt Date: 20170614
  Transmission Date: 20170830
  Serious: Yes (Hospitalization)
  Sender: FDA-Public Use
  Company Number: None

PATIENT
  Age: 55 Year
  Sex: Female
  Weight: 34.5 kg

DRUGS (20)
  1. ZYPREXA [Concomitant]
     Active Substance: OLANZAPINE
  2. ZOLOFT [Concomitant]
     Active Substance: SERTRALINE HYDROCHLORIDE
  3. HUMALOG [Concomitant]
     Active Substance: INSULIN LISPRO
  4. TYLENOL [Concomitant]
     Active Substance: ACETAMINOPHEN
  5. PHOSLO [Concomitant]
     Active Substance: CALCIUM ACETATE
  6. PLAVIX [Concomitant]
     Active Substance: CLOPIDOGREL BISULFATE
  7. FERROUS SULFATE. [Concomitant]
     Active Substance: FERROUS SULFATE
  8. PANCREAZE [Concomitant]
     Active Substance: PANCRELIPASE AMYLASE\PANCRELIPASE LIPASE\PANCRELIPASE PROTEASE
  9. IMODIUM [Concomitant]
     Active Substance: LOPERAMIDE HYDROCHLORIDE
  10. THIAMINE. [Concomitant]
     Active Substance: THIAMINE
  11. NEPHRO VITE RX [Concomitant]
     Active Substance: ASCORBIC ACID\BIOTIN\CALCIUM PANTOTHENATE\CYANOCOBALAMIN\FOLIC ACID\NIACINAMIDE\PYRIDOXINE HYDROCHLORIDE\RIBOFLAVIN\THIAMINE MONONITRATE
  12. DURAGESIC [Suspect]
     Active Substance: FENTANYL
     Indication: PAIN
     Dosage: 25 UG TRANSDERMAL EVERY 72 HOURS?
     Route: 062
     Dates: start: 20150614, end: 20170614
  13. OXYCODONE IR [Suspect]
     Active Substance: OXYCODONE
     Indication: PAIN
     Dosage: 5 MG ORAL PRN EVERY 4 HOURS
     Route: 048
  14. FOLVITE [Concomitant]
     Active Substance: FOLIC ACID
  15. ASA [Concomitant]
     Active Substance: ASPIRIN
  16. LEXAPRO [Concomitant]
     Active Substance: ESCITALOPRAM OXALATE
  17. PEPCID [Concomitant]
     Active Substance: FAMOTIDINE
  18. LOMOTIL [Concomitant]
     Active Substance: ATROPINE SULFATE\DIPHENOXYLATE HYDROCHLORIDE
  19. NEURONTIN [Concomitant]
     Active Substance: GABAPENTIN
  20. VITAMIN C [Concomitant]
     Active Substance: ASCORBIC ACID

REACTIONS (3)
  - Mental status changes [None]
  - Hypotension [None]
  - Sedation [None]

NARRATIVE: CASE EVENT DATE: 20170612
